FAERS Safety Report 25526878 (Version 1)
Quarter: 2025Q3

REPORT INFORMATION
  Report Type: Spontaneous
  Country: US (occurrence: US)
  Receive Date: 20250707
  Receipt Date: 20250707
  Transmission Date: 20251021
  Serious: Yes (Hospitalization, Other)
  Sender: MERCK SHARP & DOHME LLC
  Company Number: US-009507513-2290582

PATIENT
  Age: 1 Year
  Sex: Male

DRUGS (2)
  1. VARIVAX [Suspect]
     Active Substance: VARICELLA-ZOSTER VIRUS STRAIN OKA/MERCK LIVE ANTIGEN
     Indication: Prophylaxis
     Dates: start: 20240206, end: 20240206
  2. STERILE DILUENT (WATER) [Suspect]
     Active Substance: WATER
     Dates: start: 20240206, end: 20240206

REACTIONS (3)
  - Hepatic failure [Unknown]
  - Herpes zoster [Recovered/Resolved]
  - Contraindicated product administered [Unknown]

NARRATIVE: CASE EVENT DATE: 20240206
